FAERS Safety Report 11834118 (Version 1)
Quarter: 2015Q4

REPORT INFORMATION
  Report Type: Spontaneous
  Country: US (occurrence: US)
  Receive Date: 20151214
  Receipt Date: 20151214
  Transmission Date: 20160305
  Serious: Yes (Other)
  Sender: FDA-Public Use
  Company Number: US-ASTRAZENECA-2015SF23750

PATIENT
  Sex: Female

DRUGS (2)
  1. ABILIFY MAINTENA [Suspect]
     Active Substance: ARIPIPRAZOLE
     Route: 030
  2. SEROQUEL [Suspect]
     Active Substance: QUETIAPINE FUMARATE
     Indication: DEPRESSION
     Route: 048
     Dates: start: 20141125

REACTIONS (6)
  - Suicidal ideation [Recovered/Resolved]
  - Head discomfort [Unknown]
  - Crying [Not Recovered/Not Resolved]
  - Panic attack [Recovered/Resolved]
  - Insomnia [Not Recovered/Not Resolved]
  - Violence-related symptom [Recovered/Resolved]

NARRATIVE: CASE EVENT DATE: 20141126
